FAERS Safety Report 8327688-7 (Version None)
Quarter: 2012Q2

REPORT INFORMATION
  Report Type: 
  Country: None (occurrence: None)
  Receive Date: 20120502
  Receipt Date: 20120426
  Transmission Date: 20120825
  Serious: Yes (Other)
  Sender: FDA-Public Use
  Company Number: US-PFIZER INC-2012063370

PATIENT
  Sex: Male
  Weight: 91 kg

DRUGS (3)
  1. LORAZEPAM [Concomitant]
     Dosage: AS NEEDED
  2. GLIPIZIDE [Concomitant]
     Dosage: ONE HALF TAB DAILY
  3. SUTENT [Suspect]
     Indication: METASTATIC RENAL CELL CARCINOMA
     Dosage: 50 MG, 1X/DAY
     Dates: start: 20120216

REACTIONS (15)
  - HAEMORRHAGE [None]
  - FATIGUE [None]
  - DRY SKIN [None]
  - BLISTER [None]
  - BLOOD COUNT ABNORMAL [None]
  - HYPERTENSION [None]
  - GLOSSODYNIA [None]
  - YELLOW SKIN [None]
  - SLEEP DISORDER [None]
  - HEARING IMPAIRED [None]
  - BACK PAIN [None]
  - CONTUSION [None]
  - COUGH [None]
  - TESTICULAR DISORDER [None]
  - THROAT IRRITATION [None]
